FAERS Safety Report 7608308-3 (Version None)
Quarter: 2011Q3

REPORT INFORMATION
  Report Type: 
  Country: None (occurrence: None)
  Receive Date: 20110714
  Receipt Date: 20110706
  Transmission Date: 20111222
  Serious: Yes (Hospitalization, Disabling)
  Sender: FDA-Public Use
  Company Number: GR-CUBIST-2011S1000445

PATIENT
  Age: 58 Year
  Sex: Female
  Weight: 90 kg

DRUGS (5)
  1. CUBICIN [Suspect]
     Indication: BACTERAEMIA
     Route: 042
     Dates: start: 20110406, end: 20110502
  2. COLIMYCIN F /00532801/ [Concomitant]
     Indication: PRODUCT USED FOR UNKNOWN INDICATION
     Dosage: DOSE UNIT:U UNKNOWN
     Route: 065
     Dates: start: 20110406, end: 20110503
  3. METRONIDAZOLE [Concomitant]
     Indication: PRODUCT USED FOR UNKNOWN INDICATION
     Dosage: DOSE UNIT:U UNKNOWN
     Route: 065
     Dates: start: 20110331, end: 20110407
  4. CUBICIN [Suspect]
     Route: 042
     Dates: start: 20110406, end: 20110502
  5. AMIKACIN [Concomitant]
     Indication: PRODUCT USED FOR UNKNOWN INDICATION
     Dosage: DOSE UNIT:U UNKNOWN
     Route: 065
     Dates: start: 20110504, end: 20110508

REACTIONS (2)
  - SEDATION [None]
  - NEUROMYOPATHY [None]
